FAERS Safety Report 4378718-9 (Version None)
Quarter: 2004Q2

REPORT INFORMATION
  Report Type: 
  Country: None (occurrence: None)
  Receive Date: 20040616
  Receipt Date: 20040610
  Transmission Date: 20050107
  Serious: Yes (Hospitalization)
  Sender: FDA-Public Use
  Company Number: PHRM2004FR02076

PATIENT
  Age: 48 Year
  Sex: Female

DRUGS (4)
  1. TRILEPTAL [Suspect]
     Indication: AFFECTIVE DISORDER
     Dosage: 150 MG DAILY
     Route: 048
     Dates: end: 20040610
  2. HALDOL [Concomitant]
     Dosage: 10 DROPS PER DAY
     Route: 048
  3. DEPAKENE [Concomitant]
     Dosage: 200 MG DAILY
     Route: 048
  4. RIVOTRIL [Concomitant]

REACTIONS (7)
  - ASTHENIA [None]
  - DYSPNOEA [None]
  - INFLAMMATION [None]
  - LEUKOCYTOSIS [None]
  - PYREXIA [None]
  - URTICARIA [None]
  - VASCULITIS [None]
